FAERS Safety Report 6603461-2 (Version None)
Quarter: 2010Q1

REPORT INFORMATION
  Report Type: 
  Country: None (occurrence: None)
  Receive Date: 20100226
  Receipt Date: 20090618
  Transmission Date: 20100710
  Serious: No
  Sender: FDA-Public Use
  Company Number: A0792274A

PATIENT
  Age: 70 Year
  Sex: Female

DRUGS (6)
  1. VALTREX [Suspect]
     Dosage: 1G THREE TIMES PER DAY
     Route: 048
     Dates: start: 20090616, end: 20090617
  2. DIOVAN [Concomitant]
  3. INDERAL [Concomitant]
  4. TRAMADOL HCL [Concomitant]
  5. PHRENILIN [Concomitant]
  6. VITAMINS [Concomitant]

REACTIONS (3)
  - HYPOTONIA [None]
  - LETHARGY [None]
  - NAUSEA [None]
